FAERS Safety Report 7324018-4 (Version None)
Quarter: 2011Q1

REPORT INFORMATION
  Report Type: 
  Country: None (occurrence: None)
  Receive Date: 20110301
  Receipt Date: 20110217
  Transmission Date: 20110831
  Serious: Yes (Other)
  Sender: FDA-Public Use
  Company Number: NO-ALLERGAN-1102570US

PATIENT
  Age: 56 Year
  Sex: Female

DRUGS (2)
  1. TRYPTAN [Concomitant]
     Indication: MIGRAINE
     Dosage: UNK
  2. BOTOXA? [Suspect]
     Indication: MIGRAINE
     Dosage: UNK UNITS
     Route: 030
     Dates: start: 20110119, end: 20110119

REACTIONS (7)
  - NAUSEA [None]
  - FATIGUE [None]
  - MIGRAINE [None]
  - VISION BLURRED [None]
  - NECK PAIN [None]
  - MUSCULOSKELETAL STIFFNESS [None]
  - HEADACHE [None]
